FAERS Safety Report 9232093 (Version 2)
Quarter: 2013Q2

REPORT INFORMATION
  Report Type: Spontaneous
  Country: FR (occurrence: FR)
  Receive Date: 20130415
  Receipt Date: 20130614
  Transmission Date: 20140414
  Serious: Yes (Hospitalization)
  Sender: FDA-Public Use
  Company Number: FR-ELI_LILLY_AND_COMPANY-FR201304001643

PATIENT
  Age: 50 Year
  Sex: Female

DRUGS (5)
  1. FORSTEO [Suspect]
     Indication: OSTEOPOROSIS
     Dosage: 20 UG, QD
     Route: 058
     Dates: start: 20121030, end: 20130310
  2. FORSTEO [Suspect]
     Dosage: 20 UG, QD
     Route: 058
  3. KARDEGIC [Concomitant]
  4. SPIRIVA [Concomitant]
  5. SYMBICORT [Concomitant]

REACTIONS (1)
  - Emphysema [Unknown]
